FAERS Safety Report 20423733 (Version 1)
Quarter: 2022Q1

REPORT INFORMATION
  Report Type: Spontaneous
  Country: NL (occurrence: NL)
  Receive Date: 20220203
  Receipt Date: 20220203
  Transmission Date: 20220424
  Serious: Yes (Other)
  Sender: FDA-Public Use
  Company Number: NL-PRINSTON PHARMACEUTICAL INC.-2022PRN00022

PATIENT
  Age: 56 Year
  Sex: Male

DRUGS (3)
  1. VORICONAZOLE [Suspect]
     Active Substance: VORICONAZOLE
     Indication: Antifungal prophylaxis
     Dosage: UNK
     Route: 065
     Dates: start: 202101, end: 202102
  2. UNSPECIFIED MAINTENANCE IMMUNOSUPPRESSION [Concomitant]
     Dosage: UNK
     Route: 065
  3. UNSPECIFIED MAINTENANCE IMMUNOSUPPRESSION [Concomitant]
     Dosage: REDUCED
     Route: 065

REACTIONS (3)
  - Neutropenia [Recovered/Resolved]
  - Lymphopenia [Recovered/Resolved]
  - Mucosal ulceration [Recovered/Resolved]
